FAERS Safety Report 5099168-6 (Version None)
Quarter: 2006Q3

REPORT INFORMATION
  Report Type: 
  Country: None (occurrence: None)
  Receive Date: 20060728
  Receipt Date: 20060404
  Transmission Date: 20061208
  Serious: No
  Sender: FDA-Public Use
  Company Number: COT_0614_2006

PATIENT
  Age: 32 Year
  Sex: Female
  Weight: 53.978 kg

DRUGS (6)
  1. VENTAVIS [Suspect]
     Indication: PULMONARY HYPERTENSION
     Dosage: 2.5 MCG ONCE IH
     Route: 055
     Dates: start: 20050607, end: 20050607
  2. VENTAVIS [Suspect]
     Indication: PULMONARY HYPERTENSION
     Dosage: 5 MCG 6XD IH
     Route: 055
     Dates: start: 20050607
  3. FERROUS SULFATE TAB [Concomitant]
  4. ZOCOR [Concomitant]
  5. SILDENAFIL [Concomitant]
  6. WARFARIN SODIUM [Concomitant]

REACTIONS (2)
  - FLUSHING [None]
  - HYPOAESTHESIA ORAL [None]
